FAERS Safety Report 4504542-X (Version None)
Quarter: 2004Q4

REPORT INFORMATION
  Report Type: 
  Country: None (occurrence: None)
  Receive Date: 20041116
  Receipt Date: 20030509
  Transmission Date: 20050328
  Serious: Yes (Life-Threatening, Hospitalization, Disabling)
  Sender: FDA-Public Use
  Company Number: A01200302151

PATIENT
  Age: 67 Year
  Sex: Male

DRUGS (7)
  1. PLAVIX [Suspect]
     Indication: ANGINA UNSTABLE
     Dosage: 75 MG OD ORAL
     Route: 048
     Dates: start: 20011115, end: 20011123
  2. DIPYRIDAMOLE [Concomitant]
  3. LANSOPRAZOLE [Concomitant]
  4. ISOSORBIDE [Concomitant]
  5. PRAVASTATIN [Concomitant]
  6. DILTIAZEM [Concomitant]
  7. ASPIRIN [Concomitant]

REACTIONS (5)
  - DYSPNOEA [None]
  - INTERSTITIAL LUNG DISEASE [None]
  - OEDEMA PERIPHERAL [None]
  - PULMONARY EMBOLISM [None]
  - RASH MACULAR [None]
